FAERS Safety Report 4687997-X (Version None)
Quarter: 2005Q2

REPORT INFORMATION
  Report Type: 
  Country: None (occurrence: None)
  Receive Date: 20050608
  Receipt Date: 20050526
  Transmission Date: 20051028
  Serious: Yes (Life-Threatening, Hospitalization)
  Sender: FDA-Public Use
  Company Number: US-2005-008986

PATIENT
  Age: 55 Year
  Sex: Male
  Weight: 102.5 kg

DRUGS (3)
  1. ULTRAVIST 300 [Suspect]
     Indication: COMPUTERISED TOMOGRAM ABDOMEN
     Dosage: 100 ML, AT 3ML/SEC 1 DOSE, INTRAVENOUS
     Route: 042
     Dates: start: 20050524, end: 20050524
  2. ULTRAVIST 300 [Suspect]
  3. CONTRAST MEDIA ( ) [Suspect]
     Indication: COMPUTERISED TOMOGRAM ABDOMEN
     Dosage: 1 DOSE, ORAL
     Route: 048
     Dates: start: 20050524, end: 20050524

REACTIONS (10)
  - CARDIO-RESPIRATORY ARREST [None]
  - CONVULSION [None]
  - ENCEPHALOPATHY [None]
  - FEELING HOT [None]
  - LOSS OF CONSCIOUSNESS [None]
  - NAUSEA [None]
  - POST PROCEDURAL COMPLICATION [None]
  - RETCHING [None]
  - SNEEZING [None]
  - VOMITING [None]
